FAERS Safety Report 20778143 (Version 1)
Quarter: 2022Q2

REPORT INFORMATION
  Report Type: Spontaneous
  Country: GB (occurrence: None)
  Receive Date: 20220503
  Receipt Date: 20220503
  Transmission Date: 20220721
  Serious: Yes (Hospitalization, Other)
  Sender: FDA-Public Use
  Company Number: GB-PFIZER INC-202200617939

PATIENT
  Age: 47 Year
  Sex: Female

DRUGS (2)
  1. METHOTREXATE [Suspect]
     Active Substance: METHOTREXATE
     Indication: Rheumatoid arthritis
     Dosage: 12.5 MG, WEEKLY; ON WEDNESDAYS
     Route: 065
  2. FOLIC ACID [Concomitant]
     Active Substance: FOLIC ACID
     Dosage: ON WEDNESDAYS
     Route: 065

REACTIONS (8)
  - Toxicity to various agents [Recovered/Resolved]
  - Lower respiratory tract infection [Recovering/Resolving]
  - Acute kidney injury [Recovered/Resolved]
  - Malaise [Recovering/Resolving]
  - Cough [Recovering/Resolving]
  - Somnolence [Recovering/Resolving]
  - Pancytopenia [Recovered/Resolved]
  - Drug level increased [Unknown]
